FAERS Safety Report 8874375 (Version 1)
Quarter: 2012Q4

REPORT INFORMATION
  Report Type: Report from Study
  Country: US (occurrence: US)
  Receive Date: 20121030
  Receipt Date: 20121030
  Transmission Date: 20130627
  Serious: No
  Sender: FDA-Public Use
  Company Number: US-ABBOTT-12P-163-0946092-00

PATIENT
  Sex: Female

DRUGS (2)
  1. LUPRON DEPOT 3.75 MG [Suspect]
     Indication: UTERINE LEIOMYOMA
     Dates: start: 201110, end: 201111
  2. LUPRON DEPOT 3.75 MG [Suspect]
     Dates: start: 201203, end: 201205

REACTIONS (8)
  - Musculoskeletal pain [Unknown]
  - Vulvovaginal dryness [Unknown]
  - Arthralgia [Unknown]
  - Pelvic pain [Unknown]
  - Joint stiffness [Unknown]
  - Joint stiffness [Unknown]
  - Musculoskeletal stiffness [Unknown]
  - Amenorrhoea [Unknown]
